FAERS Safety Report 7582626-X (Version None)
Quarter: 2011Q2

REPORT INFORMATION
  Report Type: 
  Country: None (occurrence: None)
  Receive Date: 20110630
  Receipt Date: 20110627
  Transmission Date: 20111010
  Serious: Yes (Other)
  Sender: FDA-Public Use
  Company Number: US-PFIZER INC-2011118627

PATIENT
  Age: 41 Year
  Sex: Female

DRUGS (4)
  1. MONTELUKAST [Concomitant]
     Indication: HYPERSENSITIVITY
     Dosage: UNK
     Dates: start: 20010101
  2. CELEXA [Concomitant]
     Indication: ANXIETY
     Dosage: UNK
     Dates: start: 19980101
  3. CELEXA [Concomitant]
     Indication: DEPRESSION
  4. CHANTIX [Suspect]
     Indication: SMOKING CESSATION THERAPY
     Dosage: 1 MG, UNK
     Dates: start: 20080101, end: 20080301

REACTIONS (10)
  - IMPAIRED DRIVING ABILITY [None]
  - ABNORMAL BEHAVIOUR [None]
  - MOOD SWINGS [None]
  - EMOTIONAL DISTRESS [None]
  - INSOMNIA [None]
  - PANIC ATTACK [None]
  - MENTAL DISORDER [None]
  - AGGRESSION [None]
  - WEIGHT DECREASED [None]
  - DEPRESSION [None]
